FAERS Safety Report 12388231 (Version 1)
Quarter: 2016Q2

REPORT INFORMATION
  Report Type: Spontaneous
  Country: US (occurrence: None)
  Receive Date: 20160519
  Receipt Date: 20160519
  Transmission Date: 20160815
  Serious: Yes (Disabling)
  Sender: FDA-Public Use
  Company Number: None

PATIENT
  Age: 56 Year
  Sex: Male
  Weight: 92.53 kg

DRUGS (9)
  1. FISH OIL [Concomitant]
     Active Substance: FISH OIL
  2. PRADAXA [Suspect]
     Active Substance: DABIGATRAN ETEXILATE MESYLATE
     Indication: ATRIAL FIBRILLATION
     Route: 048
     Dates: start: 20160426, end: 20160517
  3. TURMERIC [Concomitant]
     Active Substance: TURMERIC
  4. MULTI-VITAMINS [Concomitant]
  5. Q-10 [Concomitant]
  6. VITAMIN D3 [Concomitant]
     Active Substance: CHOLECALCIFEROL
  7. GEMFIBROZIL. [Concomitant]
     Active Substance: GEMFIBROZIL
  8. FLAX SEED [Concomitant]
     Active Substance: FLAX SEED
  9. VITAMIN B12 [Concomitant]
     Active Substance: CYANOCOBALAMIN

REACTIONS (3)
  - Peripheral swelling [None]
  - Joint swelling [None]
  - Gout [None]

NARRATIVE: CASE EVENT DATE: 20160426
